FAERS Safety Report 16284653 (Version 3)
Quarter: 2020Q1

REPORT INFORMATION
  Report Type: Report from Study
  Country: US (occurrence: US)
  Receive Date: 20190508
  Receipt Date: 20200227
  Transmission Date: 20200409
  Serious: Yes (Other)
  Sender: FDA-Public Use
  Company Number: US-HBP-2019US018868

PATIENT
  Age: 58 Year
  Sex: Male

DRUGS (2)
  1. VALCHLOR [Suspect]
     Active Substance: MECHLORETHAMINE
     Dosage: UNK, EVERY THIRD DAY
     Route: 061
  2. VALCHLOR [Suspect]
     Active Substance: MECHLORETHAMINE
     Indication: CUTANEOUS T-CELL LYMPHOMA
     Dosage: UNK, ONCE DAILY
     Route: 061
     Dates: start: 201810

REACTIONS (5)
  - Application site rash [Recovered/Resolved]
  - Application site erythema [Recovered/Resolved]
  - Purulent discharge [Recovered/Resolved]
  - Application site ulcer [Recovered/Resolved]
  - Dermatitis contact [Recovered/Resolved]

NARRATIVE: CASE EVENT DATE: 201811
